FAERS Safety Report 6534501-7 (Version None)
Quarter: 2010Q1

REPORT INFORMATION
  Report Type: 
  Country: None (occurrence: None)
  Receive Date: 20100112
  Receipt Date: 20100108
  Transmission Date: 20100710
  Serious: Yes (Hospitalization, Other)
  Sender: FDA-Public Use
  Company Number: IS-PFIZER INC-2009305251

PATIENT
  Age: 30 Year
  Sex: Male

DRUGS (5)
  1. LYRICA [Suspect]
     Indication: ANXIETY DISORDER
     Dosage: 1200 MG, 1X/DAY
  2. SEROQUEL [Concomitant]
     Dosage: 300 MG, 1X/DAY
  3. EFFEXOR [Concomitant]
     Dosage: 300 MG, 1X/DAY
  4. TEGRETOL RETARD [Concomitant]
     Dosage: 400 MG, 2X/DAY
  5. ORAP [Concomitant]
     Dosage: 5 MG, 1X/DAY

REACTIONS (3)
  - DEPRESSED MOOD [None]
  - DRUG ABUSE [None]
  - SUICIDAL IDEATION [None]
